FAERS Safety Report 6820107-9 (Version None)
Quarter: 2010Q3

REPORT INFORMATION
  Report Type: 
  Country: None (occurrence: None)
  Receive Date: 20100707
  Receipt Date: 20100629
  Transmission Date: 20110219
  Serious: Yes (Other)
  Sender: FDA-Public Use
  Company Number: JP-SANOFI-AVENTIS-2010SA037306

PATIENT
  Sex: Female

DRUGS (2)
  1. ALLEGRA [Suspect]
     Indication: PRURITUS
     Route: 065
     Dates: start: 20100401
  2. ADALAT [Suspect]

REACTIONS (1)
  - STEVENS-JOHNSON SYNDROME [None]
